FAERS Safety Report 8009867-1 (Version None)
Quarter: 2011Q4

REPORT INFORMATION
  Report Type: 
  Country: None (occurrence: None)
  Receive Date: 20111221
  Receipt Date: 20111212
  Transmission Date: 20120403
  Serious: Yes (Hospitalization, Other)
  Sender: FDA-Public Use
  Company Number: 2011MA017576

PATIENT
  Weight: 3.51 kg

DRUGS (1)
  1. OXYCODONE HCL [Suspect]
     Indication: DRUG ABUSE

REACTIONS (9)
  - AUTONOMIC NERVOUS SYSTEM IMBALANCE [None]
  - RESPIRATORY DISORDER [None]
  - GASTROINTESTINAL DISORDER [None]
  - AUTONOMIC NEUROPATHY [None]
  - BLOOD PH DECREASED [None]
  - NERVOUS SYSTEM DISORDER [None]
  - FOETAL EXPOSURE DURING PREGNANCY [None]
  - PREMATURE BABY [None]
  - DRUG WITHDRAWAL SYNDROME NEONATAL [None]
